FAERS Safety Report 26126490 (Version 1)
Quarter: 2025Q4

REPORT INFORMATION
  Report Type: Spontaneous
  Country: AU (occurrence: AU)
  Receive Date: 20251205
  Receipt Date: 20251205
  Transmission Date: 20260119
  Serious: Yes (Other)
  Sender: BIOVITRUM
  Company Number: AU-BIOVITRUM-2025-AU-016885

PATIENT
  Sex: Male

DRUGS (1)
  1. KINERET [Suspect]
     Active Substance: ANAKINRA
     Indication: Product used for unknown indication

REACTIONS (7)
  - Bone marrow failure [Unknown]
  - Cataract [Unknown]
  - Drug ineffective [Unknown]
  - Glucose tolerance impaired [Unknown]
  - Injection site reaction [Unknown]
  - Ulcer [Unknown]
  - Weight increased [Unknown]
